FAERS Safety Report 12722356 (Version 2)
Quarter: 2017Q1

REPORT INFORMATION
  Report Type: Spontaneous
  Country: CA (occurrence: CA)
  Receive Date: 20160907
  Receipt Date: 20170224
  Transmission Date: 20170428
  Serious: Yes (Other)
  Sender: FDA-Public Use
  Company Number: CA-TAKEDA-2016TUS015916

PATIENT
  Age: 31 Year
  Sex: Male
  Weight: 75 kg

DRUGS (5)
  1. TRINTELLIX [Suspect]
     Active Substance: VORTIOXETINE HYDROBROMIDE
     Indication: DISTURBANCE IN ATTENTION
     Dosage: UNK
     Route: 065
  2. COGENTIN [Concomitant]
     Active Substance: BENZTROPINE MESYLATE
     Indication: TEMPOROMANDIBULAR JOINT SYNDROME
     Dosage: UNK
     Route: 065
     Dates: start: 201512
  3. TRINTELLIX [Suspect]
     Active Substance: VORTIOXETINE HYDROBROMIDE
     Indication: DEPRESSION
     Dosage: 5 MG, QD
     Route: 048
     Dates: start: 201509, end: 201509
  4. ATIVAN [Concomitant]
     Active Substance: LORAZEPAM
     Indication: TEMPOROMANDIBULAR JOINT SYNDROME
     Dosage: UNK
     Route: 065
     Dates: start: 201512
  5. TRINTELLIX [Suspect]
     Active Substance: VORTIOXETINE HYDROBROMIDE
     Indication: ANXIETY
     Dosage: 10 MG, QD
     Route: 048
     Dates: start: 201512

REACTIONS (5)
  - Trismus [Recovering/Resolving]
  - Temporomandibular joint syndrome [Unknown]
  - Trismus [Unknown]
  - Temporomandibular joint syndrome [Recovering/Resolving]
  - Trismus [Recovering/Resolving]

NARRATIVE: CASE EVENT DATE: 201509
